FAERS Safety Report 23313099 (Version 2)
Quarter: 2023Q4

REPORT INFORMATION
  Report Type: Other
  Country: KR (occurrence: KR)
  Receive Date: 20231219
  Receipt Date: 20231229
  Transmission Date: 20240110
  Serious: Yes (Other)
  Sender: FDA-Public Use
  Company Number: KR-002147023-NVSC2023KR263630

PATIENT
  Age: 63 Year

DRUGS (6)
  1. LUCENTIS [Suspect]
     Active Substance: RANIBIZUMAB
     Indication: Diabetic retinal oedema
     Dosage: 1.25MG/0.05ML (FIRST INJECTION)
     Route: 065
  2. LUCENTIS [Suspect]
     Active Substance: RANIBIZUMAB
     Dosage: 1.25MG/0.05ML (SECOND INJECTION)
     Route: 065
  3. LUCENTIS [Suspect]
     Active Substance: RANIBIZUMAB
     Dosage: 1.25MG/0.05ML (THIRD INJECTION)
     Route: 065
  4. MOROXACIN [Concomitant]
     Indication: Infection prophylaxis
     Dosage: UNK, QID
  5. PARACAINE [Concomitant]
     Active Substance: PROPARACAINE HYDROCHLORIDE
     Indication: Local anaesthesia
     Dosage: UNK
  6. POVIDONE-IODINE [Concomitant]
     Active Substance: POVIDONE-IODINE
     Indication: Infection prophylaxis
     Dosage: UNK

REACTIONS (2)
  - Macular oedema [Unknown]
  - Therapeutic response decreased [Unknown]
